FAERS Safety Report 9402924 (Version 3)
Quarter: 2013Q3

REPORT INFORMATION
  Report Type: Spontaneous
  Country: JP (occurrence: JP)
  Receive Date: 20130716
  Receipt Date: 20130807
  Transmission Date: 20140515
  Serious: Yes (Hospitalization)
  Sender: FDA-Public Use
  Company Number: PHHY2013JP074510

PATIENT
  Age: 33 Year
  Sex: Male

DRUGS (4)
  1. CARBAMAZEPINE [Suspect]
     Indication: EPILEPSY
     Dosage: UNK UKN, UNK
     Route: 048
     Dates: start: 2009
  2. VALPROIC ACID [Suspect]
     Indication: EPILEPSY
     Dosage: UNK UKN, UNK
     Route: 048
     Dates: start: 2009
  3. PREDNISOLONE [Concomitant]
     Dosage: 20 MG, UNK
     Dates: start: 20120305
  4. PREDNISOLONE [Concomitant]
     Dosage: 50 MG, UNK

REACTIONS (22)
  - Allergic granulomatous angiitis [Unknown]
  - Glomerulonephritis rapidly progressive [Unknown]
  - Tubulointerstitial nephritis [Unknown]
  - Eosinophilia [Recovered/Resolved]
  - Cough [Unknown]
  - Nasopharyngitis [Unknown]
  - Pyrexia [Unknown]
  - Abdominal pain [Recovering/Resolving]
  - Gastroenteritis eosinophilic [Unknown]
  - Rash [Unknown]
  - Normochromic normocytic anaemia [Unknown]
  - Hypoalbuminaemia [Unknown]
  - Hydronephrosis [Unknown]
  - Hyperplasia [Unknown]
  - Gastrointestinal erosion [Unknown]
  - Gastrointestinal haemorrhage [Unknown]
  - Rhinitis allergic [Unknown]
  - Melaena [Unknown]
  - Antineutrophil cytoplasmic antibody positive [Unknown]
  - Proteinuria [Unknown]
  - Streptococcal infection [Unknown]
  - Oropharyngeal pain [Unknown]
